FAERS Safety Report 4999474-7 (Version None)
Quarter: 2006Q2

REPORT INFORMATION
  Report Type: 
  Country: None (occurrence: None)
  Receive Date: 20060509
  Receipt Date: 20060509
  Transmission Date: 20061013
  Serious: Yes (Hospitalization)
  Sender: FDA-Public Use
  Company Number: None

PATIENT
  Age: 67 Year
  Sex: Male

DRUGS (9)
  1. FLUOROURACIL [Suspect]
     Indication: OESOPHAGEAL CARCINOMA
     Dates: start: 20051101
  2. MEGESTROL [Concomitant]
  3. ESOMEPRAZOLE [Concomitant]
  4. BACLOFEN [Concomitant]
  5. SERTRALINE [Concomitant]
  6. FINASTERIDE [Concomitant]
  7. TERAZOSIN HCL [Concomitant]
  8. ONDANSETRON HCL [Concomitant]
  9. CHLORPROMAZINE [Concomitant]

REACTIONS (5)
  - ANOREXIA [None]
  - DEHYDRATION [None]
  - DIARRHOEA [None]
  - NAUSEA [None]
  - VOMITING [None]
